FAERS Safety Report 6551421-2 (Version None)
Quarter: 2010Q1

REPORT INFORMATION
  Report Type: 
  Country: None (occurrence: None)
  Receive Date: 20100120
  Receipt Date: 20100106
  Transmission Date: 20100710
  Serious: Yes (Hospitalization)
  Sender: FDA-Public Use
  Company Number: 2010SP000052

PATIENT
  Age: 41 Year
  Sex: Female

DRUGS (8)
  1. XOPENEX [Suspect]
     Indication: CHRONIC OBSTRUCTIVE PULMONARY DISEASE
     Dosage: 0.63 MG/3ML;QID;INHALATION; 0.63 MG/3ML;Q2H; INHALATION
     Route: 055
     Dates: end: 20100102
  2. XOPENEX [Suspect]
     Indication: CHRONIC OBSTRUCTIVE PULMONARY DISEASE
     Dosage: 0.63 MG/3ML;QID;INHALATION; 0.63 MG/3ML;Q2H; INHALATION
     Route: 055
     Dates: start: 20100102
  3. IPRATROPIUM [Suspect]
     Dosage: QID; Q2H
     Dates: end: 20100102
  4. IPRATROPIUM [Suspect]
     Dosage: QID; Q2H
     Dates: start: 20100102
  5. DILTIAZEM HCL [Concomitant]
  6. INSULIN [Concomitant]
  7. HUMULIN /00646001/ [Concomitant]
  8. OXYGEN [Concomitant]

REACTIONS (4)
  - CONDITION AGGRAVATED [None]
  - DYSPNOEA [None]
  - HIP ARTHROPLASTY [None]
  - RESPIRATORY TRACT INFECTION [None]
